FAERS Safety Report 6232836-9 (Version None)
Quarter: 2009Q2

REPORT INFORMATION
  Report Type: 
  Country: None (occurrence: None)
  Receive Date: 20090617
  Receipt Date: 20080605
  Transmission Date: 20091009
  Serious: No
  Sender: FDA-Public Use
  Company Number: US-ASTRAZENECA-2008UW11315

PATIENT
  Age: 75 Year
  Sex: Female

DRUGS (3)
  1. FASLODEX [Suspect]
     Dosage: 250 MG 1 X 5.0 ML
     Route: 030
     Dates: start: 20070401
  2. ZOMETA [Concomitant]
  3. CALTRATE [Concomitant]

REACTIONS (3)
  - INJECTION SITE PAIN [None]
  - URINARY TRACT INFECTION [None]
  - URINE ODOUR ABNORMAL [None]
